FAERS Safety Report 8128314 (Version 3)
Quarter: 2014Q3

REPORT INFORMATION
  Report Type: Spontaneous
  Country: DE (occurrence: DE)
  Receive Date: 20110909
  Receipt Date: 20140729
  Transmission Date: 20150326
  Serious: Yes (Other)
  Sender: FDA-Public Use
  Company Number: DE-RANBAXY-2011RR-47380

PATIENT
  Age: 38 Year
  Sex: Female

DRUGS (1)
  1. TOPIRAMATE. [Suspect]
     Active Substance: TOPIRAMATE
     Indication: MIGRAINE
     Dosage: 25 MG/DAY
     Route: 065

REACTIONS (6)
  - Flat anterior chamber of eye [Recovered/Resolved]
  - Iris disorder [Recovered/Resolved]
  - Blindness [Recovered/Resolved]
  - Choroidal detachment [Recovered/Resolved]
  - Ciliary body disorder [Recovered/Resolved]
  - Choroidal effusion [Recovered/Resolved]
